FAERS Safety Report 14121238 (Version 3)
Quarter: 2018Q1

REPORT INFORMATION
  Report Type: Spontaneous
  Country: FR (occurrence: FR)
  Receive Date: 20171024
  Receipt Date: 20180319
  Transmission Date: 20180508
  Serious: Yes (Hospitalization)
  Sender: FDA-Public Use
  Company Number: FR-PFIZER INC-2017451269

PATIENT
  Age: 54 Year
  Sex: Male
  Weight: 61 kg

DRUGS (3)
  1. GEMCITABINE HYDROCHLORIDE. [Suspect]
     Active Substance: GEMCITABINE HYDROCHLORIDE
     Dosage: 1250 MG/M2 (THIRD COURSE)
     Route: 042
     Dates: start: 20170602
  2. GEMCITABINE HYDROCHLORIDE. [Suspect]
     Active Substance: GEMCITABINE HYDROCHLORIDE
     Indication: METASTATIC BRONCHIAL CARCINOMA
     Dosage: 1250 MG/M2 (INTRODUCTION)
     Route: 042
     Dates: start: 20170420, end: 20170427
  3. GEMCITABINE HYDROCHLORIDE. [Suspect]
     Active Substance: GEMCITABINE HYDROCHLORIDE
     Dosage: 1250 MG/M2 (COURSE 2)
     Route: 042
     Dates: start: 20170511, end: 20170518

REACTIONS (3)
  - Toxicity to various agents [Unknown]
  - Hypoxia [Unknown]
  - Interstitial lung disease [Recovering/Resolving]

NARRATIVE: CASE EVENT DATE: 20170602
